FAERS Safety Report 11699739 (Version 2)
Quarter: 2015Q4

REPORT INFORMATION
  Report Type: Spontaneous
  Country: US (occurrence: US)
  Receive Date: 20151105
  Receipt Date: 20151105
  Transmission Date: 20160304
  Serious: Yes (Other)
  Sender: FDA-Public Use
  Company Number: CHPA2015US012999

PATIENT
  Sex: Female

DRUGS (3)
  1. VOLTAREN [Suspect]
     Active Substance: DICLOFENAC SODIUM
     Indication: ANTIPHOSPHOLIPID SYNDROME
     Dosage: 2 TO 4 G, TID TO KNEE
     Route: 061
  2. VOLTAREN [Suspect]
     Active Substance: DICLOFENAC SODIUM
     Dosage: UNK TO BACK
     Route: 061
  3. VOLTAREN [Suspect]
     Active Substance: DICLOFENAC SODIUM
     Indication: PROCEDURAL PAIN
     Dosage: 2G, COUPLE OF TIMES A DAY TO NECK
     Route: 061

REACTIONS (7)
  - Incorrect dose administered [Unknown]
  - Gait disturbance [Unknown]
  - Bone disorder [Unknown]
  - Product use issue [Unknown]
  - Drug administered at inappropriate site [Unknown]
  - Antiphospholipid syndrome [Unknown]
  - Inappropriate schedule of drug administration [Unknown]
